FAERS Safety Report 22866396 (Version 3)
Quarter: 2023Q4

REPORT INFORMATION
  Report Type: Spontaneous
  Country: US (occurrence: US)
  Receive Date: 20230825
  Receipt Date: 20231225
  Transmission Date: 20240110
  Serious: Yes (Other)
  Sender: FDA-Public Use
  Company Number: US-BRISTOL-MYERS SQUIBB COMPANY-2023-119990

PATIENT
  Age: 76 Year
  Sex: Female

DRUGS (2)
  1. POMALYST [Suspect]
     Active Substance: POMALIDOMIDE
     Indication: Plasma cell myeloma
     Dosage: TAKE 1 CAPSULE BY MOUTH DAILY ON AN EMTPY STOMACH, 2 HOURS BEFORE OR  AFTER A MEAL,ON DAYS 1-21 OF 2
     Route: 048
     Dates: start: 20200915
  2. POMALYST [Suspect]
     Active Substance: POMALIDOMIDE
     Dates: start: 20230903

REACTIONS (2)
  - Product dose omission issue [Unknown]
  - Urinary tract infection [Recovered/Resolved]

NARRATIVE: CASE EVENT DATE: 20230901
